FAERS Safety Report 10261514 (Version 2)
Quarter: 2014Q2

REPORT INFORMATION
  Report Type: Spontaneous
  Country: US (occurrence: US)
  Receive Date: 20140626
  Receipt Date: 20140626
  Transmission Date: 20141212
  Serious: No
  Sender: FDA-Public Use
  Company Number: US-MYLANLABS-2013S1022658

PATIENT
  Age: 81 Year
  Sex: Female
  Weight: 98.88 kg

DRUGS (2)
  1. PERFOROMIST (FORMOTEROL FUMARATE) INHALATION SOLUTION [Suspect]
     Indication: ASTHMA
     Route: 055
     Dates: start: 201310, end: 20131005
  2. BUDESONIDE [Suspect]
     Indication: ASTHMA
     Route: 055
     Dates: start: 201310, end: 20131005

REACTIONS (7)
  - Chest pain [Recovered/Resolved]
  - Dyspnoea [Recovered/Resolved]
  - Tachycardia [Recovered/Resolved]
  - Muscular weakness [Recovered/Resolved]
  - Tremor [Recovered/Resolved]
  - Screaming [Recovered/Resolved]
  - Drug administration error [Recovered/Resolved]
